FAERS Safety Report 24116135 (Version 1)
Quarter: 2024Q3

REPORT INFORMATION
  Report Type: Report from Study
  Country: FR (occurrence: FR)
  Receive Date: 20240722
  Receipt Date: 20240722
  Transmission Date: 20241016
  Serious: Yes (Life-Threatening, Hospitalization, Other)
  Sender: AUROBINDO
  Company Number: FR-STADA-230429

PATIENT
  Age: 3 Year
  Sex: Female

DRUGS (1)
  1. PREGABALIN [Suspect]
     Active Substance: PREGABALIN
     Indication: Product used for unknown indication
     Dosage: 75 MILLIGRAM (FOUR IMMEDIATE-RELEASE CAPSULES OF 75MG PREGABALIN (300 MG; 21.3 MG/KG)
     Route: 048

REACTIONS (9)
  - Coma [Recovered/Resolved]
  - Miosis [Recovered/Resolved]
  - Ataxia [Recovered/Resolved]
  - Accidental exposure to product by child [Recovered/Resolved]
  - Abdominal pain [Unknown]
  - Product use issue [Unknown]
  - Mydriasis [Unknown]
  - Dysarthria [Unknown]
  - Vertigo [Unknown]
